FAERS Safety Report 10057049 (Version 2)
Quarter: 2014Q2

REPORT INFORMATION
  Report Type: Spontaneous
  Country: JP (occurrence: JP)
  Receive Date: 20140403
  Receipt Date: 20140408
  Transmission Date: 20141212
  Serious: Yes (Hospitalization)
  Sender: FDA-Public Use
  Company Number: JP-TEVA-472507USA

PATIENT
  Age: 60 Year
  Sex: Male

DRUGS (4)
  1. BENDAMUSTINE [Suspect]
     Indication: B-CELL LYMPHOMA
     Dosage: FREQUENCY: ONCE IN 3 WEEKS; CYCLIC
     Route: 042
     Dates: start: 20121017, end: 20121018
  2. BENDAMUSTINE [Suspect]
     Indication: B-CELL LYMPHOMA
     Dosage: FREQUENCY: ONCE IN 3 WEEKS; CYCLIC
     Route: 042
     Dates: start: 20121120, end: 20121121
  3. RITUXIMAB [Concomitant]
     Dosage: FREQUENCY: PER THREE WEEKS; CYCLIC
     Route: 042
     Dates: start: 20121016
  4. RITUXIMAB [Concomitant]
     Dosage: FREQUENCY: PER THREE WEEKS; CYCLIC
     Route: 042
     Dates: start: 20121119

REACTIONS (1)
  - Lymphocyte count decreased [Not Recovered/Not Resolved]
